FAERS Safety Report 14055932 (Version 1)
Quarter: 2017Q4

REPORT INFORMATION
  Report Type: Spontaneous
  Country: US (occurrence: US)
  Receive Date: 20171006
  Receipt Date: 20171006
  Transmission Date: 20180321
  Serious: Yes (Other)
  Sender: FDA-Public Use
  Company Number: US-JNJFOC-20170929275

PATIENT
  Age: 48 Year
  Sex: Male
  Weight: 103.42 kg

DRUGS (3)
  1. FLAGYL [Suspect]
     Active Substance: METRONIDAZOLE\METRONIDAZOLE HYDROCHLORIDE
     Indication: LIVER ABSCESS
     Route: 048
     Dates: start: 200703, end: 200705
  2. LEVAQUIN [Suspect]
     Active Substance: LEVOFLOXACIN
     Indication: LIVER ABSCESS
     Route: 048
     Dates: start: 200703, end: 200705
  3. LEVAQUIN [Suspect]
     Active Substance: LEVOFLOXACIN
     Indication: LIVER ABSCESS
     Route: 042
     Dates: start: 20070312, end: 20070318

REACTIONS (3)
  - Decreased appetite [Unknown]
  - Insomnia [Unknown]
  - Demyelinating polyneuropathy [Unknown]

NARRATIVE: CASE EVENT DATE: 200703
